FAERS Safety Report 13115222 (Version 2)
Quarter: 2017Q1

REPORT INFORMATION
  Report Type: Spontaneous
  Country: US (occurrence: US)
  Receive Date: 20170113
  Receipt Date: 20170307
  Transmission Date: 20170428
  Serious: Yes (Hospitalization)
  Sender: FDA-Public Use
  Company Number: US-IMPAX LABORATORIES, INC-2016-IPXL-02556

PATIENT
  Age: 14 Year
  Sex: Female

DRUGS (1)
  1. TETRACYCLINE HYDROCHLORIDE. [Suspect]
     Active Substance: TETRACYCLINE HYDROCHLORIDE
     Indication: ACNE
     Dosage: 1 G, DAILY
     Route: 065
     Dates: start: 197606

REACTIONS (1)
  - Intracranial pressure increased [Recovered/Resolved]
